FAERS Safety Report 24950083 (Version 4)
Quarter: 2025Q2

REPORT INFORMATION
  Report Type: Spontaneous
  Country: US (occurrence: US)
  Receive Date: 20250210
  Receipt Date: 20250521
  Transmission Date: 20250717
  Serious: Yes (Other)
  Sender: GILEAD
  Company Number: US-GILEAD-2025-0702244

PATIENT
  Age: 57 Year
  Sex: Male

DRUGS (1)
  1. TRUVADA [Suspect]
     Active Substance: EMTRICITABINE\TENOFOVIR DISOPROXIL FUMARATE
     Indication: HIV infection
     Route: 048
     Dates: start: 20040802, end: 20220801

REACTIONS (6)
  - Multiple fractures [Unknown]
  - Osteonecrosis [Unknown]
  - Osteomalacia [Unknown]
  - Bone density decreased [Unknown]
  - Bone loss [Unknown]
  - Tooth loss [Recovered/Resolved]

NARRATIVE: CASE EVENT DATE: 20170901
